FAERS Safety Report 9547565 (Version 2)
Quarter: 2013Q3

REPORT INFORMATION
  Report Type: Spontaneous
  Country: CZ (occurrence: CZ)
  Receive Date: 20130924
  Receipt Date: 20130924
  Transmission Date: 20140515
  Serious: Yes (Other)
  Sender: FDA-Public Use
  Company Number: PHHY2013CZ053489

PATIENT
  Sex: Female

DRUGS (8)
  1. SIGNIFOR [Suspect]
     Indication: CUSHING^S SYNDROME
     Dosage: 0.6 MG, BID
     Dates: start: 20130429, end: 20130510
  2. SIGNIFOR [Suspect]
     Dosage: 0.9 MG, BID
     Dates: start: 20130702, end: 20130809
  3. EUTHYROX [Concomitant]
     Indication: HYPOTHYROIDISM
     Dosage: 100 UG PER 04 DAYS A WEEK
  4. EUTHYROX [Concomitant]
     Dosage: 50 UG PER 03 DAYS A WEEK
  5. EZETIMIBE [Concomitant]
     Indication: HYPERCHOLESTEROLAEMIA
     Dosage: 1 DF, PER DAY
  6. AGEN [Concomitant]
     Indication: HYPERTENSION
     Dosage: 10 MG
  7. TENSIOMIN [Concomitant]
     Indication: HYPERTENSION
  8. SEROPRAM [Concomitant]
     Indication: NEUROSIS
     Dosage: 20 MG, FOR ONE NIGHT

REACTIONS (10)
  - Cortisol free urine increased [Recovering/Resolving]
  - Hypokalaemia [Recovering/Resolving]
  - Hyperglycaemia [Recovering/Resolving]
  - Oedema [Recovering/Resolving]
  - Oedema peripheral [Recovering/Resolving]
  - Swelling face [Recovering/Resolving]
  - Hirsutism [Recovering/Resolving]
  - Headache [Recovering/Resolving]
  - Asthenia [Recovering/Resolving]
  - Alopecia [Recovering/Resolving]
